FAERS Safety Report 23284267 (Version 1)
Quarter: 2023Q4

REPORT INFORMATION
  Report Type: Spontaneous
  Country: US (occurrence: None)
  Receive Date: 20231211
  Receipt Date: 20231211
  Transmission Date: 20240110
  Serious: Yes (Hospitalization)
  Sender: FDA-Public Use
  Company Number: None

PATIENT
  Age: 59 Year
  Sex: Female

DRUGS (19)
  1. TACROLIMUS [Suspect]
     Active Substance: TACROLIMUS
     Indication: Congenital cystic kidney disease
     Dosage: FREQUENCY : EVERY 12 HOURS;?
     Route: 048
     Dates: start: 20200304
  2. ALBUTEROL AER HFA [Concomitant]
  3. ALLOPURINOL [Concomitant]
     Active Substance: ALLOPURINOL
  4. BENZONATATE [Concomitant]
     Active Substance: BENZONATATE
  5. BUPROPION [Concomitant]
     Active Substance: BUPROPION
  6. CALCITRIOL [Concomitant]
     Active Substance: CALCITRIOL
  7. DEXAMETHASONE [Concomitant]
     Active Substance: DEXAMETHASONE
  8. FLUTICASONE [Concomitant]
  9. GABAPENTIN [Concomitant]
     Active Substance: GABAPENTIN
  10. ACETAMINOPHEN\HYDROCODONE [Concomitant]
     Active Substance: ACETAMINOPHEN\HYDROCODONE
  11. KETOROLAC [Concomitant]
     Active Substance: KETOROLAC TROMETHAMINE
  12. LOSARTAN POTASSIUM [Concomitant]
     Active Substance: LOSARTAN POTASSIUM
  13. LOSARTAN POTASSIUM [Concomitant]
     Active Substance: LOSARTAN POTASSIUM
  14. METHOCARBAMOL [Concomitant]
     Active Substance: METHOCARBAMOL
  15. ONDANSETRON [Concomitant]
     Active Substance: ONDANSETRON
  16. ONDANSETRON [Concomitant]
     Active Substance: ONDANSETRON
  17. PREDNISOLONE SUS [Concomitant]
  18. PREDNISONE [Concomitant]
     Active Substance: PREDNISONE
  19. TOPIRAMATE [Concomitant]
     Active Substance: TOPIRAMATE

REACTIONS (3)
  - Headache [None]
  - Hypertension [None]
  - Product dose omission issue [None]

NARRATIVE: CASE EVENT DATE: 20231206
